FAERS Safety Report 4853025-6 (Version None)
Quarter: 2005Q4

REPORT INFORMATION
  Report Type: 
  Country: None (occurrence: None)
  Receive Date: 20051212
  Receipt Date: 20051202
  Transmission Date: 20060501
  Serious: Yes (Hospitalization, Other)
  Sender: FDA-Public Use
  Company Number: 05-061

PATIENT
  Age: 3 Year
  Sex: Female
  Weight: 14.6 kg

DRUGS (2)
  1. LORTAB [Suspect]
     Dosage: 4ML; }24HR{=1WEEK, ORAL
     Route: 048
  2. ACETAMINOPHEN [Suspect]
     Dosage: 140 MG; }24HR{=1WEEK, ORAL
     Route: 048

REACTIONS (3)
  - ABDOMINAL PAIN [None]
  - MEDICATION ERROR [None]
  - VOMITING [None]
